FAERS Safety Report 5355115-0 (Version None)
Quarter: 2007Q2

REPORT INFORMATION
  Report Type: 
  Country: None (occurrence: None)
  Receive Date: 20070613
  Receipt Date: 20070605
  Transmission Date: 20071010
  Serious: Yes (Other)
  Sender: FDA-Public Use
  Company Number: PHBS2007IT09508

PATIENT
  Age: 71 Year
  Sex: Female

DRUGS (2)
  1. AREDIA [Suspect]
     Dates: start: 20010701, end: 20020210
  2. ZOMETA [Suspect]
     Dates: start: 20030601, end: 20040601

REACTIONS (1)
  - OSTEONECROSIS [None]
